FAERS Safety Report 24405602 (Version 1)
Quarter: 2024Q4

REPORT INFORMATION
  Report Type: Spontaneous
  Country: JP (occurrence: JP)
  Receive Date: 20241007
  Receipt Date: 20241007
  Transmission Date: 20250114
  Serious: Yes (Life-Threatening)
  Sender: GE HEALTHCARE
  Company Number: JP-GEHPL-2024JSU011177AA

PATIENT
  Age: 75 Year
  Sex: Male
  Weight: 93.1 kg

DRUGS (2)
  1. OMNIPAQUE [Suspect]
     Active Substance: IOHEXOL
     Indication: Aortogram
     Dosage: 25 ML, TOTAL
     Route: 013
     Dates: start: 20240918, end: 20240918
  2. OMNIPAQUE [Suspect]
     Active Substance: IOHEXOL
     Indication: Angiocardiogram

REACTIONS (2)
  - Ventricular fibrillation [Recovering/Resolving]
  - Kounis syndrome [Recovering/Resolving]

NARRATIVE: CASE EVENT DATE: 20240918
